FAERS Safety Report 24560813 (Version 2)
Quarter: 2024Q4

REPORT INFORMATION
  Report Type: Spontaneous
  Country: JP (occurrence: JP)
  Receive Date: 20241029
  Receipt Date: 20241108
  Transmission Date: 20250114
  Serious: No
  Sender: GALDERMA
  Company Number: JP-GALDERMA-JP2024014105

PATIENT

DRUGS (2)
  1. NEMOLIZUMAB [Suspect]
     Active Substance: NEMOLIZUMAB
     Dosage: 1 DOSAGE FORM, EVERY 4 WEEKS
     Route: 058
     Dates: start: 20230424, end: 20230424
  2. NEMOLIZUMAB [Suspect]
     Active Substance: NEMOLIZUMAB
     Dosage: 1 DOSAGE FORM, EVERY 4 WEEKS
     Route: 058

REACTIONS (3)
  - Haematochezia [Recovered/Resolved]
  - Faeces soft [Recovered/Resolved]
  - Eosinophil count increased [Unknown]
